FAERS Safety Report 17930936 (Version 1)
Quarter: 2020Q2

REPORT INFORMATION
  Report Type: Report from Study
  Country: US (occurrence: US)
  Receive Date: 20200623
  Receipt Date: 20200623
  Transmission Date: 20200714
  Serious: Yes (Other)
  Sender: FDA-Public Use
  Company Number: US-ROCHE-2065235

PATIENT

DRUGS (5)
  1. RITUXIMAB. [Suspect]
     Active Substance: RITUXIMAB
     Indication: B-CELL LYMPHOMA
     Route: 042
  2. LENALIDOMIDE [Suspect]
     Active Substance: LENALIDOMIDE
     Indication: B-CELL LYMPHOMA
     Route: 048
  3. BENDAMUSTINE [Suspect]
     Active Substance: BENDAMUSTINE
     Indication: B-CELL LYMPHOMA
     Route: 042
  4. BORTEZOMIB. [Suspect]
     Active Substance: BORTEZOMIB
     Route: 058
  5. BORTEZOMIB. [Suspect]
     Active Substance: BORTEZOMIB
     Indication: B-CELL LYMPHOMA
     Route: 042

REACTIONS (78)
  - Haemolysis [Unknown]
  - Rash maculo-papular [Unknown]
  - Abdominal pain [Unknown]
  - Blood alkaline phosphatase increased [Unknown]
  - International normalised ratio increased [Unknown]
  - Decreased appetite [Unknown]
  - Hypokalaemia [Unknown]
  - Arthritis [Unknown]
  - Agitation [Unknown]
  - Febrile neutropenia [Unknown]
  - Anaemia [Unknown]
  - Peripheral sensory neuropathy [Unknown]
  - White blood cell count decreased [Unknown]
  - Neutrophil count decreased [Unknown]
  - Restrictive cardiomyopathy [Unknown]
  - Pyrexia [Unknown]
  - Pruritus [Unknown]
  - Urticaria [Unknown]
  - Infection [Unknown]
  - Lipase increased [Unknown]
  - Weight decreased [Unknown]
  - Dehydration [Unknown]
  - Hypophosphataemia [Unknown]
  - Tumour lysis syndrome [Unknown]
  - Dizziness [Unknown]
  - Fatigue [Unknown]
  - Thrombocytopenia [Unknown]
  - Lip infection [Unknown]
  - Alanine aminotransferase increased [Unknown]
  - Hyperkalaemia [Unknown]
  - Headache [Unknown]
  - Chronic kidney disease [Unknown]
  - Neutropenia [Unknown]
  - Diarrhoea [Unknown]
  - Cardiac failure [Unknown]
  - Non-cardiac chest pain [Unknown]
  - Colitis [Unknown]
  - Stomatitis [Unknown]
  - Small intestinal obstruction [Unknown]
  - Phlebitis infective [Unknown]
  - Skin infection [Unknown]
  - Blood cholesterol increased [Unknown]
  - Arthralgia [Unknown]
  - Cerebrovascular accident [Unknown]
  - Dyspnoea [Unknown]
  - Hypertension [Unknown]
  - Dysphagia [Unknown]
  - Gastrointestinal disorder [Unknown]
  - Upper respiratory tract infection [Unknown]
  - Urinary tract infection [Unknown]
  - Aspartate aminotransferase increased [Unknown]
  - Back pain [Unknown]
  - Hyperglycaemia [Unknown]
  - Peripheral nerve infection [Unknown]
  - Sepsis [Unknown]
  - Tooth infection [Unknown]
  - Muscular weakness [Unknown]
  - Confusional state [Unknown]
  - Acute kidney injury [Unknown]
  - Hypotension [Unknown]
  - Embolism [Unknown]
  - Pneumonia [Unknown]
  - Lymphocyte count decreased [Unknown]
  - Platelet count decreased [Unknown]
  - Infusion related reaction [Unknown]
  - Constipation [Unknown]
  - Hypersensitivity [Unknown]
  - Cystitis [Unknown]
  - Otitis media [Unknown]
  - Myalgia [Unknown]
  - Syncope [Unknown]
  - Depression [Unknown]
  - Injection site reaction [Unknown]
  - Nausea [Unknown]
  - Vomiting [Unknown]
  - Hyponatraemia [Unknown]
  - Peripheral motor neuropathy [Unknown]
  - Presyncope [Unknown]
